FAERS Safety Report 18212983 (Version 1)
Quarter: 2020Q3

REPORT INFORMATION
  Report Type: Report from Study
  Country: EG (occurrence: EG)
  Receive Date: 20200831
  Receipt Date: 20200831
  Transmission Date: 20201103
  Serious: Yes (Death)
  Sender: FDA-Public Use
  Company Number: EG-PFIZER INC-2020330673

PATIENT

DRUGS (3)
  1. CYTARABINE. [Suspect]
     Active Substance: CYTARABINE
     Dosage: 3 TO 4 CYCLES (3 G/M2 OVER 12 HOURS ON DAYS 1, 3, AND 5)
  2. CYTARABINE. [Suspect]
     Active Substance: CYTARABINE
     Indication: ACUTE MYELOID LEUKAEMIA
     Dosage: 100 MG/M2 (CONTINUOUS INTRAVENOUS INFUSION FOR 7 DAYS)
     Route: 042
  3. IDARUBICIN HCL [Suspect]
     Active Substance: IDARUBICIN HYDROCHLORIDE
     Indication: ACUTE MYELOID LEUKAEMIA
     Dosage: 12 MG/M2 (IDARUBICIN 12 MG/M2 FOR 3 DAYS)

REACTIONS (1)
  - Toxicity to various agents [Fatal]
